FAERS Safety Report 24991150 (Version 3)
Quarter: 2025Q2

REPORT INFORMATION
  Report Type: Spontaneous
  Country: US (occurrence: US)
  Receive Date: 20250220
  Receipt Date: 20250519
  Transmission Date: 20250717
  Serious: Yes (Other)
  Sender: PFIZER
  Company Number: US-PFIZER INC-202400307911

PATIENT
  Age: 67 Year
  Sex: Male
  Weight: 79.7 kg

DRUGS (3)
  1. XALKORI [Suspect]
     Active Substance: CRIZOTINIB
     Indication: Lung neoplasm malignant
     Dosage: UNK, 2X/DAY
     Dates: end: 20241114
  2. XALKORI [Suspect]
     Active Substance: CRIZOTINIB
     Dates: start: 2024, end: 202412
  3. XALKORI [Suspect]
     Active Substance: CRIZOTINIB
     Dosage: TAKE 1 CAPSULE (200 MG TOTAL) 2 TIMES A DAY
     Route: 048

REACTIONS (3)
  - Lung neoplasm malignant [Unknown]
  - Malignant neoplasm progression [Unknown]
  - Product dose omission in error [Unknown]
